FAERS Safety Report 4526360-9 (Version None)
Quarter: 2004Q4

REPORT INFORMATION
  Report Type: 
  Country: None (occurrence: None)
  Receive Date: 20041213
  Receipt Date: 20041202
  Transmission Date: 20050328
  Serious: Yes (Hospitalization, Other)
  Sender: FDA-Public Use
  Company Number: HQWYE761706DEC04

PATIENT
  Age: 72 Year
  Sex: Female

DRUGS (3)
  1. EFFEXOR [Suspect]
     Indication: DEPRESSION
     Dosage: SEE IMAGE
     Route: 048
     Dates: start: 20020101, end: 20041029
  2. EFFEXOR [Suspect]
     Indication: DEPRESSION
     Dosage: SEE IMAGE
     Route: 048
     Dates: start: 20041030, end: 20041102
  3. ASASANTIN (ACETYLSALICYLIC ACID/DIPYRIDAMOLE) [Concomitant]

REACTIONS (2)
  - ANGIONEUROTIC OEDEMA [None]
  - URTICARIA [None]
